FAERS Safety Report 18202193 (Version 3)
Quarter: 2021Q1

REPORT INFORMATION
  Report Type: Spontaneous
  Country: US (occurrence: US)
  Receive Date: 20200827
  Receipt Date: 20210309
  Transmission Date: 20210419
  Serious: Yes (Hospitalization, Other)
  Sender: FDA-Public Use
  Company Number: US-PFIZER INC-2020330397

PATIENT
  Age: 63 Year
  Sex: Male

DRUGS (9)
  1. CARVEDIOL [Concomitant]
     Active Substance: CARVEDILOL
     Dosage: 12.5 MG
  2. INLYTA [Suspect]
     Active Substance: AXITINIB
     Dosage: 5 MG, 2X/DAY
     Route: 048
     Dates: start: 20201101, end: 202011
  3. FLUDROCORTISONE ACETATE. [Concomitant]
     Active Substance: FLUDROCORTISONE ACETATE
     Dosage: UNK
  4. ATORVASTATIN CALCIUM. [Concomitant]
     Active Substance: ATORVASTATIN CALCIUM
     Dosage: 10 MG
  5. PRASUGREL HCL [Concomitant]
     Dosage: 10 MG
  6. INLYTA [Suspect]
     Active Substance: AXITINIB
     Indication: RENAL CANCER
     Dosage: 5 MG, 2X/DAY
     Route: 048
     Dates: start: 2015, end: 202008
  7. HYDROCORTISONE. [Concomitant]
     Active Substance: HYDROCORTISONE
     Dosage: UNK
  8. ASPIRIN [ACETYLSALICYLIC ACID] [Concomitant]
     Active Substance: ASPIRIN
     Dosage: 325 MG
  9. NIFEDIPINE. [Concomitant]
     Active Substance: NIFEDIPINE
     Dosage: 10 MG

REACTIONS (5)
  - Diarrhoea [Unknown]
  - Blood pressure systolic increased [Unknown]
  - Myocardial infarction [Unknown]
  - Product dose omission issue [Unknown]
  - Hypertension [Unknown]

NARRATIVE: CASE EVENT DATE: 2020
